FAERS Safety Report 4356940-5 (Version None)
Quarter: 2004Q2

REPORT INFORMATION
  Report Type: 
  Country: None (occurrence: None)
  Receive Date: 20040507
  Receipt Date: 20040426
  Transmission Date: 20050107
  Serious: Yes (Other)
  Sender: FDA-Public Use
  Company Number: 2004027853

PATIENT
  Age: 67 Year
  Sex: Female

DRUGS (10)
  1. NORVASC [Suspect]
     Indication: ILL-DEFINED DISORDER
  2. NIFEDIPINE [Suspect]
     Indication: HYPERTENSION
     Dosage: 20 MG (DAILY), ORAL
     Route: 048
     Dates: start: 20040321, end: 20040323
  3. TELMISARTAN (TELMISARTAN) [Suspect]
     Indication: ILL-DEFINED DISORDER
     Dosage: 60 MG (DAILY)
     Dates: start: 20030609
  4. NIFEDIPINE [Suspect]
     Indication: ILL-DEFINED DISORDER
     Dates: start: 20040310, end: 20040313
  5. IRBESARTAN (IRBESARTAN) [Suspect]
     Indication: ILL-DEFINED DISORDER
  6. BUNAZOSIN HYDROCHLORIDE (BUNAZOSIN HYDROCHLORIDE) [Suspect]
     Indication: ILL-DEFINED DISORDER
  7. TORSEMIDE [Concomitant]
  8. TICLOPIDINE HCL [Concomitant]
  9. SIMVASTATIN [Concomitant]
  10. VALSARTAN (VALSARTAN) [Concomitant]

REACTIONS (17)
  - BLOOD PRESSURE INCREASED [None]
  - ERYTHEMA [None]
  - ERYTHROMELALGIA [None]
  - GASTROINTESTINAL DISORDER [None]
  - GENERAL PHYSICAL CONDITION ABNORMAL [None]
  - HEADACHE [None]
  - JAUNDICE [None]
  - LEUKOENCEPHALOMYELITIS [None]
  - NEUROLOGICAL SYMPTOM [None]
  - PALPITATIONS [None]
  - PARAESTHESIA [None]
  - PHOTOSENSITIVITY REACTION [None]
  - PRURITUS [None]
  - RASH [None]
  - SENSORY DISTURBANCE [None]
  - SKIN REACTION [None]
  - URINARY RETENTION [None]
